FAERS Safety Report 10143541 (Version 1)
Quarter: 2014Q2

REPORT INFORMATION
  Report Type: Spontaneous
  Country: US (occurrence: None)
  Receive Date: 20140429
  Receipt Date: 20140429
  Transmission Date: 20141212
  Serious: Yes (Other)
  Sender: FDA-Public Use
  Company Number: None

PATIENT
  Age: 85 Year
  Sex: Male

DRUGS (1)
  1. ZYTIGA 250?MG JANSSEN [Suspect]
     Indication: PROSTATE CANCER
     Dosage: 4 TABLETS (1000 MG TOTAL) ?QD?PO
     Route: 048
     Dates: start: 20140327, end: 20140428

REACTIONS (4)
  - Hypoaesthesia [None]
  - Lip pain [None]
  - Lip disorder [None]
  - Bite [None]
